FAERS Safety Report 13142860 (Version 1)
Quarter: 2017Q1

REPORT INFORMATION
  Report Type: Spontaneous
  Country: US (occurrence: US)
  Receive Date: 20170124
  Receipt Date: 20170124
  Transmission Date: 20170428
  Serious: No
  Sender: FDA-Public Use
  Company Number: US-ELI_LILLY_AND_COMPANY-US201701000887

PATIENT
  Sex: Female

DRUGS (1)
  1. HUMATROPE [Suspect]
     Active Substance: SOMATROPIN
     Indication: GROWTH HORMONE DEFICIENCY
     Dosage: 0.6 MG, QD
     Route: 065
     Dates: start: 2010

REACTIONS (8)
  - Mood altered [Unknown]
  - Antisocial behaviour [Unknown]
  - Drug dose omission [Not Recovered/Not Resolved]
  - Alcohol intolerance [Unknown]
  - Depressed mood [Unknown]
  - Abnormal behaviour [Unknown]
  - Lethargy [Unknown]
  - Anxiety [Unknown]

NARRATIVE: CASE EVENT DATE: 2016
